FAERS Safety Report 10443095 (Version 4)
Quarter: 2014Q4

REPORT INFORMATION
  Report Type: Spontaneous
  Country: JP (occurrence: JP)
  Receive Date: 20140909
  Receipt Date: 20141006
  Transmission Date: 20150528
  Serious: Yes (Other)
  Sender: FDA-Public Use
  Company Number: PHHY2014JP103716

PATIENT
  Age: 26 Year
  Sex: Male

DRUGS (6)
  1. SULPIRIDE [Concomitant]
     Active Substance: SULPIRIDE
  2. HALOPERIDOL. [Suspect]
     Active Substance: HALOPERIDOL
     Route: 048
  3. AMITRIPTYLINE [Suspect]
     Active Substance: AMITRIPTYLINE
  4. CLONAZEPAM. [Concomitant]
     Active Substance: CLONAZEPAM
     Route: 048
  5. CLOMIPRAMINE [Suspect]
     Active Substance: CLOMIPRAMINE
  6. LUDIOMIL [Suspect]
     Active Substance: MAPROTILINE HYDROCHLORIDE
     Indication: CIRCADIAN RHYTHM SLEEP DISORDER
     Route: 048

REACTIONS (4)
  - Drug ineffective [Unknown]
  - Schizophrenia [Recovered/Resolved]
  - Akathisia [Recovered/Resolved]
  - Emotional disorder [Recovered/Resolved]
